FAERS Safety Report 9639338 (Version 1)
Quarter: 2013Q4

REPORT INFORMATION
  Report Type: Spontaneous
  Country: GB (occurrence: None)
  Receive Date: 20131021
  Receipt Date: 20131021
  Transmission Date: 20140711
  Serious: Yes (Death)
  Sender: FDA-Public Use
  Company Number: 2013TP000576

PATIENT
  Sex: Female

DRUGS (5)
  1. LIDOCAINE [Suspect]
     Indication: PRODUCT USED FOR UNKNOWN INDICATION
  2. AERRANE [Suspect]
     Indication: COLECTOMY
     Dates: start: 20121122
  3. BUPIVACAINE HYDROCHLORIDE [Suspect]
     Indication: PRODUCT USED FOR UNKNOWN INDICATION
  4. KETAMINE [Suspect]
     Indication: PRODUCT USED FOR UNKNOWN INDICATION
  5. ALFENTANIL [Suspect]
     Indication: PRODUCT USED FOR UNKNOWN INDICATION

REACTIONS (8)
  - Hepatotoxicity [None]
  - Toxicity to various agents [None]
  - Acute hepatic failure [None]
  - Anuria [None]
  - Acidosis [None]
  - Blood creatinine increased [None]
  - Multi-organ failure [None]
  - Amylase increased [None]
